FAERS Safety Report 9080053 (Version 1)
Quarter: 2013Q1

REPORT INFORMATION
  Report Type: Spontaneous
  Country: GB (occurrence: GB)
  Receive Date: 20130218
  Receipt Date: 20130218
  Transmission Date: 20140127
  Serious: Yes (Other)
  Sender: FDA-Public Use
  Company Number: PHHY2013GB014152

PATIENT
  Sex: Female

DRUGS (3)
  1. METHOTREXATE [Suspect]
     Indication: ANKYLOSING SPONDYLITIS
     Dates: end: 20130111
  2. NORETHISTERONE [Interacting]
     Indication: MENORRHAGIA
     Dates: end: 20130111
  3. ADALIMUMAB [Interacting]
     Indication: ANKYLOSING SPONDYLITIS
     Dates: start: 2008, end: 20130111

REACTIONS (3)
  - Hepatic function abnormal [Recovering/Resolving]
  - Liver function test abnormal [Recovering/Resolving]
  - Drug interaction [Unknown]
